FAERS Safety Report 7290383-X (Version None)
Quarter: 2011Q1

REPORT INFORMATION
  Report Type: 
  Country: None (occurrence: None)
  Receive Date: 20110214
  Receipt Date: 20110203
  Transmission Date: 20110831
  Serious: Yes (Hospitalization)
  Sender: FDA-Public Use
  Company Number: JP-ASTRAZENECA-2010SE48716

PATIENT
  Age: 28432 Day
  Sex: Male
  Weight: 45 kg

DRUGS (6)
  1. THEOLONG [Concomitant]
     Route: 048
  2. ALLELOCK [Concomitant]
     Route: 048
  3. IRESSA [Suspect]
     Indication: NON-SMALL CELL LUNG CANCER
     Route: 048
     Dates: start: 20100916, end: 20100924
  4. SINGULAIR [Concomitant]
     Route: 048
  5. TAKEPRON [Concomitant]
     Route: 048
  6. LASIX [Concomitant]
     Route: 048

REACTIONS (1)
  - LUNG DISORDER [None]
